FAERS Safety Report 4847893-1 (Version None)
Quarter: 2005Q4

REPORT INFORMATION
  Report Type: 
  Country: None (occurrence: None)
  Receive Date: 20051206
  Receipt Date: 20051123
  Transmission Date: 20060501
  Serious: Yes (Hospitalization, Other)
  Sender: FDA-Public Use
  Company Number: 2005160578

PATIENT
  Sex: Male
  Weight: 84.369 kg

DRUGS (2)
  1. NEURONTIN [Suspect]
     Indication: FIBROMYALGIA
     Dosage: 1800 MG (600 MG, 3 IN 1 D)
  2. CELEBREX [Concomitant]

REACTIONS (3)
  - KNEE ARTHROPLASTY [None]
  - SURGERY [None]
  - TREATMENT NONCOMPLIANCE [None]
